FAERS Safety Report 16150420 (Version 7)
Quarter: 2019Q4

REPORT INFORMATION
  Report Type: Report from Study
  Country: US (occurrence: US)
  Receive Date: 20190402
  Receipt Date: 20191118
  Transmission Date: 20200122
  Serious: Yes (Death, Hospitalization)
  Sender: FDA-Public Use
  Company Number: US-ACTELION-A-NJ2018-170809

PATIENT
  Age: 77 Year
  Sex: Female
  Weight: 61.68 kg

DRUGS (5)
  1. REVATIO [Concomitant]
     Active Substance: SILDENAFIL CITRATE
     Dosage: 80 MG, TID
  2. TYVASO [Concomitant]
     Active Substance: TREPROSTINIL
     Dosage: 9 BREATHS, QID
     Route: 055
     Dates: start: 20100319
  3. OPSUMIT [Suspect]
     Active Substance: MACITENTAN
     Indication: PULMONARY ARTERIAL HYPERTENSION
     Dosage: 10 MG, QD
     Route: 048
     Dates: start: 2016
  4. REMODULIN [Suspect]
     Active Substance: TREPROSTINIL
     Indication: PRODUCT USED FOR UNKNOWN INDICATION
     Dosage: 9 NG/KG, PER MIN
     Route: 065
     Dates: start: 20190321
  5. TYVASO [Concomitant]
     Active Substance: TREPROSTINIL
     Dosage: 12-15 BREATHS 4 TIMES DAILY

REACTIONS (17)
  - Chest pain [Recovering/Resolving]
  - Diarrhoea [Recovered/Resolved]
  - Death [Fatal]
  - Dizziness [Unknown]
  - Pulmonary arterial pressure abnormal [Recovered/Resolved]
  - Gastrointestinal bacterial overgrowth [Recovered/Resolved]
  - Dyspnoea exertional [Unknown]
  - Dyspnoea [Recovered/Resolved]
  - Abdominal pain [Recovered/Resolved]
  - Device breakage [Recovered/Resolved]
  - Oedema [Recovered/Resolved]
  - Product dose omission [Unknown]
  - Complication associated with device [Unknown]
  - Chest discomfort [Recovering/Resolving]
  - Fluid retention [Recovered/Resolved]
  - Right ventricular failure [Recovered/Resolved]
  - Pulmonary hypertension [Unknown]

NARRATIVE: CASE EVENT DATE: 201809
